FAERS Safety Report 18074074 (Version 1)
Quarter: 2020Q3

REPORT INFORMATION
  Report Type: Spontaneous
  Country: CN (occurrence: CN)
  Receive Date: 20200727
  Receipt Date: 20200727
  Transmission Date: 20201103
  Serious: Yes (Other)
  Sender: FDA-Public Use
  Company Number: CN-BAXTER-2020BAX014970

PATIENT
  Age: 56 Year
  Sex: Male
  Weight: 61.5 kg

DRUGS (9)
  1. XELODA [Suspect]
     Active Substance: CAPECITABINE
     Indication: CHEMOTHERAPY
     Dosage: TABLET, 6TH COURSE
     Route: 048
     Dates: start: 20200509, end: 20200523
  2. 5% GLUCOSE  INJECTION [Suspect]
     Active Substance: DEXTROSE
     Indication: MEDICATION DILUTION
     Dosage: 1 TO 5 COURSES
     Route: 041
  3. XELODA [Suspect]
     Active Substance: CAPECITABINE
     Indication: COLON CANCER
     Dosage: TABLET, 1 TO 5 COURSES
     Route: 048
  4. LESHADING [Suspect]
     Active Substance: OXALIPLATIN
     Indication: COLON CANCER
     Dosage: 1 TO 5 COURSES, LESHADING + 5% GLUCOSE
     Route: 041
  5. 5% GLUCOSE  INJECTION [Suspect]
     Active Substance: DEXTROSE
     Dosage: 6TH COURSE
     Route: 041
     Dates: start: 20200509, end: 20200509
  6. XELODA [Suspect]
     Active Substance: CAPECITABINE
     Dosage: TABLET, DOSE REINTRODUCED
     Route: 048
  7. LESHADING [Suspect]
     Active Substance: OXALIPLATIN
     Dosage: DOSE REINTRODUCED, LESHADING + 5% GLUCOSE
     Route: 041
  8. LESHADING [Suspect]
     Active Substance: OXALIPLATIN
     Indication: CHEMOTHERAPY
     Dosage: 6TH COURSE, LESHADING + 5% GLUCOSE
     Route: 041
     Dates: start: 20200509, end: 20200509
  9. 5% GLUCOSE  INJECTION [Suspect]
     Active Substance: DEXTROSE
     Dosage: DOSE REINTRODUCED
     Route: 041

REACTIONS (2)
  - Neutropenia [Recovered/Resolved]
  - Leukopenia [Recovered/Resolved]

NARRATIVE: CASE EVENT DATE: 20200610
